FAERS Safety Report 9887470 (Version 1)
Quarter: 2013Q4

REPORT INFORMATION
  Report Type: Spontaneous
  Country: US (occurrence: None)
  Receive Date: 20131223
  Receipt Date: 20131223
  Transmission Date: 20140711
  Serious: Yes (Other)
  Sender: FDA-Public Use
  Company Number: 220528LEO

PATIENT
  Sex: Female

DRUGS (1)
  1. PICATO [Suspect]
     Indication: ACTINIC KERATOSIS
     Dosage: MID JANUARY 2013 (1 IN 1 D), TOPICAL
     Route: 061
     Dates: start: 201301, end: 201301

REACTIONS (3)
  - Diarrhoea [None]
  - Inappropriate schedule of drug administration [None]
  - Drug administration error [None]
